FAERS Safety Report 9523536 (Version 3)
Quarter: 2013Q4

REPORT INFORMATION
  Report Type: Spontaneous
  Country: JP (occurrence: JP)
  Receive Date: 20130913
  Receipt Date: 20131003
  Transmission Date: 20140711
  Serious: Yes (Death, Life-Threatening)
  Sender: FDA-Public Use
  Company Number: JP-BAXTER-2013BAX035484

PATIENT
  Age: 55 Year
  Sex: Male

DRUGS (3)
  1. IFOSFAMIDE FOR INJECTION [Suspect]
     Indication: PERITONEAL SARCOMA
     Route: 041
     Dates: start: 20130819, end: 20130819
  2. IFOSFAMIDE FOR INJECTION [Suspect]
     Route: 041
     Dates: start: 20130820, end: 20130820
  3. DOXORUBICIN HYDROCHLORIDE [Suspect]
     Indication: PERITONEAL SARCOMA
     Route: 041
     Dates: start: 20130819, end: 20130820

REACTIONS (4)
  - Encephalopathy [Recovered/Resolved]
  - Diabetes insipidus [Recovered/Resolved]
  - Pneumonia [Fatal]
  - Bone marrow failure [Fatal]
